FAERS Safety Report 6614387-2 (Version None)
Quarter: 2010Q1

REPORT INFORMATION
  Report Type: 
  Country: None (occurrence: None)
  Receive Date: 20100303
  Receipt Date: 20100303
  Transmission Date: 20100710
  Serious: Yes (Other)
  Sender: FDA-Public Use
  Company Number: None

PATIENT
  Age: 13 Year
  Sex: Male
  Weight: 43.0917 kg

DRUGS (2)
  1. RISPERIDONE [Suspect]
     Indication: MENTAL DISORDER
     Dosage: CH -10 YEAR OLD GIRL- 1 MO. TWICE A DAY PO
     Route: 048
     Dates: start: 20050201, end: 20060219
  2. RISPERIDONE [Suspect]
     Indication: MENTAL DISORDER
     Dosage: AJ -13 YEAR OLD BOY- .05 MG. TRICE A DAY PO
     Route: 048
     Dates: start: 20080501, end: 20100226

REACTIONS (1)
  - DYSTONIA [None]
